FAERS Safety Report 9005542 (Version 2)
Quarter: 2013Q1

REPORT INFORMATION
  Report Type: Spontaneous
  Country: JP (occurrence: JP)
  Receive Date: 20130109
  Receipt Date: 20130329
  Transmission Date: 20140127
  Serious: Yes (Life-Threatening)
  Sender: FDA-Public Use
  Company Number: JP-PFIZER INC-2013009875

PATIENT
  Sex: Female

DRUGS (1)
  1. LYRICA [Suspect]
     Dosage: 50 MG, 1X/DAY
     Route: 048

REACTIONS (4)
  - Altered state of consciousness [Recovering/Resolving]
  - Myoclonus [Recovering/Resolving]
  - Hypotension [Recovering/Resolving]
  - Atrioventricular block [Recovering/Resolving]
